FAERS Safety Report 13293818 (Version 2)
Quarter: 2017Q1

REPORT INFORMATION
  Report Type: Spontaneous
  Country: IT (occurrence: IT)
  Receive Date: 20170303
  Receipt Date: 20170323
  Transmission Date: 20170428
  Serious: Yes (Death, Other)
  Sender: FDA-Public Use
  Company Number: IT-BAYER-2017-036691

PATIENT
  Age: 51 Year
  Sex: Male

DRUGS (2)
  1. SORAFENIB (RAF KINASE INHIBITOR) [Suspect]
     Active Substance: SORAFENIB
     Indication: HEPATOCELLULAR CARCINOMA
     Dosage: 800 MG/DAY
     Route: 048
     Dates: start: 201404
  2. SORAFENIB (RAF KINASE INHIBITOR) [Suspect]
     Active Substance: SORAFENIB
     Indication: HEPATOCELLULAR CARCINOMA
     Dosage: 400 MG/DAY
     Route: 048
     Dates: start: 201405

REACTIONS (6)
  - Discomfort [None]
  - Cardiac death [Fatal]
  - Palmar-plantar erythrodysaesthesia syndrome [None]
  - Abdominal pain upper [None]
  - Diarrhoea [None]
  - Chest pain [None]
